FAERS Safety Report 8194551-4 (Version None)
Quarter: 2012Q1

REPORT INFORMATION
  Report Type: 
  Country: None (occurrence: None)
  Receive Date: 20120308
  Receipt Date: 20110624
  Transmission Date: 20120608
  Serious: No
  Sender: FDA-Public Use
  Company Number: US-GLAXOSMITHKLINE-A0932917A

PATIENT
  Age: 32 Year
  Sex: Male

DRUGS (1)
  1. NICORETTE [Suspect]
     Indication: EX-TOBACCO USER
     Dates: start: 20110624, end: 20110624

REACTIONS (12)
  - PHARYNGEAL HYPOAESTHESIA [None]
  - PHARYNGEAL OEDEMA [None]
  - STOMATITIS [None]
  - HYPOAESTHESIA ORAL [None]
  - FEELING HOT [None]
  - PHARYNGEAL INFLAMMATION [None]
  - OROPHARYNGEAL DISCOMFORT [None]
  - ORAL DISCOMFORT [None]
  - ORAL PAIN [None]
  - THROAT IRRITATION [None]
  - OROPHARYNGEAL PAIN [None]
  - SALIVARY HYPERSECRETION [None]
